FAERS Safety Report 12348287 (Version 1)
Quarter: 2016Q2

REPORT INFORMATION
  Report Type: Spontaneous
  Country: MY (occurrence: MY)
  Receive Date: 20160509
  Receipt Date: 20160509
  Transmission Date: 20160815
  Serious: Yes (Death)
  Sender: FDA-Public Use
  Company Number: MY-BRACCO-000021

PATIENT
  Age: 67 Year
  Sex: Male

DRUGS (1)
  1. BARIUM SULPHATE [Suspect]
     Active Substance: BARIUM SULFATE
     Indication: BARIUM SWALLOW
     Route: 048

REACTIONS (4)
  - Aspiration [Not Recovered/Not Resolved]
  - Laryngeal disorder [Unknown]
  - Pneumonitis chemical [Fatal]
  - Respiratory distress [Not Recovered/Not Resolved]
